FAERS Safety Report 13814389 (Version 1)
Quarter: 2017Q3

REPORT INFORMATION
  Report Type: Spontaneous
  Country: US (occurrence: US)
  Receive Date: 20170730
  Receipt Date: 20170730
  Transmission Date: 20171127
  Serious: No
  Sender: FDA-Public Use
  Company Number: None

PATIENT
  Age: 41 Year
  Sex: Female

DRUGS (1)
  1. METHYLPREDNISOLONE, 4 MG CADISTA [Suspect]
     Active Substance: METHYLPREDNISOLONE
     Indication: URTICARIA
     Route: 048
     Dates: start: 20170723, end: 20170728

REACTIONS (3)
  - Palpitations [None]
  - Asthenopia [None]
  - Dizziness [None]

NARRATIVE: CASE EVENT DATE: 20170723
